FAERS Safety Report 17236997 (Version 1)
Quarter: 2019Q4

REPORT INFORMATION
  Report Type: Spontaneous
  Country: US (occurrence: US)
  Receive Date: 20191211
  Receipt Date: 20191211
  Transmission Date: 20200122
  Serious: No
  Sender: FDA-Public Use
  Company Number: None

PATIENT
  Sex: 0

DRUGS (2)
  1. CEFAZOLIN SODIUM CEFAZOLIN INJECTION [Suspect]
     Active Substance: CEFAZOLIN SODIUM
  2. MYXREDLIN [Suspect]
     Active Substance: INSULIN HUMAN

REACTIONS (3)
  - Wrong product administered [None]
  - Blood glucose increased [None]
  - Product appearance confusion [None]
